FAERS Safety Report 11495380 (Version 1)
Quarter: 2015Q3

REPORT INFORMATION
  Report Type: Spontaneous
  Country: US (occurrence: US)
  Receive Date: 20150911
  Receipt Date: 20150911
  Transmission Date: 20151125
  Serious: No
  Sender: FDA-Public Use
  Company Number: US-ROCHE-1011719

PATIENT
  Sex: Female

DRUGS (4)
  1. COPEGUS [Suspect]
     Active Substance: RIBAVIRIN
     Indication: CHRONIC HEPATITIS C
     Route: 065
     Dates: start: 20070124, end: 20070727
  2. PEGASYS [Suspect]
     Active Substance: PEGINTERFERON ALFA-2A
     Dosage: 12 WEEKS TREATMENT
     Route: 065
     Dates: start: 20110922
  3. PEGASYS [Suspect]
     Active Substance: PEGINTERFERON ALFA-2A
     Indication: CHRONIC HEPATITIS C
     Route: 065
     Dates: start: 20070124, end: 20070727
  4. COPEGUS [Suspect]
     Active Substance: RIBAVIRIN
     Dosage: 12 WEEKS TREATMENT
     Route: 065
     Dates: start: 20110922

REACTIONS (2)
  - Hepatitis C [Unknown]
  - Alopecia [Unknown]
